FAERS Safety Report 20309395 (Version 1)
Quarter: 2022Q1

REPORT INFORMATION
  Report Type: Spontaneous
  Country: US (occurrence: US)
  Receive Date: 20220107
  Receipt Date: 20220107
  Transmission Date: 20220423
  Serious: Yes (Other)
  Sender: FDA-Public Use
  Company Number: US-JNJFOC-20211266607

PATIENT
  Sex: Female

DRUGS (2)
  1. OPSUMIT [Suspect]
     Active Substance: MACITENTAN
     Indication: Product used for unknown indication
     Route: 048
  2. TADALAFIL [Concomitant]
     Active Substance: TADALAFIL

REACTIONS (2)
  - Hallucination [Not Recovered/Not Resolved]
  - Inappropriate schedule of product administration [Unknown]
